FAERS Safety Report 15962318 (Version 1)
Quarter: 2019Q1

REPORT INFORMATION
  Report Type: Spontaneous
  Country: US (occurrence: US)
  Receive Date: 20190214
  Receipt Date: 20190214
  Transmission Date: 20190417
  Serious: Yes (Hospitalization)
  Sender: FDA-Public Use
  Company Number: US-UNICHEM PHARMACEUTICALS (USA) INC-UCM201902-000070

PATIENT
  Age: 68 Year
  Sex: Female

DRUGS (7)
  1. VITAMIN D [Suspect]
     Active Substance: CHOLECALCIFEROL
  2. CALCIUM [Suspect]
     Active Substance: CALCIUM
  3. METRONIDAZOLE. [Concomitant]
     Active Substance: METRONIDAZOLE
     Indication: DIVERTICULUM
  4. VALSARTAN. [Concomitant]
     Active Substance: VALSARTAN
     Indication: HYPERTENSION
  5. HYDROCHLOROTHIAZIDE. [Suspect]
     Active Substance: HYDROCHLOROTHIAZIDE
     Indication: HYPERTENSION
  6. VITAMIN A [Suspect]
     Active Substance: VITAMIN A
     Indication: MACULAR DEGENERATION
  7. CIPROFLOXACIN. [Concomitant]
     Active Substance: CIPROFLOXACIN
     Indication: DIVERTICULUM
     Route: 048

REACTIONS (4)
  - Dizziness [Unknown]
  - Mental status changes [Unknown]
  - Dehydration [Unknown]
  - Hypercalcaemia [Recovered/Resolved]
